FAERS Safety Report 16169963 (Version 1)
Quarter: 2019Q2

REPORT INFORMATION
  Report Type: Spontaneous
  Country: US (occurrence: US)
  Receive Date: 20190305
  Receipt Date: 20190305
  Transmission Date: 20190711
  Serious: Yes (Hospitalization)
  Sender: FDA-Public Use
  Company Number: None

PATIENT
  Age: 5 Year
  Sex: Female

DRUGS (1)
  1. VIGABATRIN 500 MG POWDER [Suspect]
     Active Substance: VIGABATRIN
     Indication: EPILEPSY
     Dates: start: 20171220

REACTIONS (1)
  - Anaemia [None]

NARRATIVE: CASE EVENT DATE: 201903
